FAERS Safety Report 16422346 (Version 2)
Quarter: 2019Q2

REPORT INFORMATION
  Report Type: Spontaneous
  Country: US (occurrence: US)
  Receive Date: 20190612
  Receipt Date: 20190619
  Transmission Date: 20190711
  Serious: Yes (Life-Threatening, Hospitalization, Other)
  Sender: FDA-Public Use
  Company Number: US-PFIZER INC-2019246704

PATIENT
  Age: 41 Year
  Sex: Male

DRUGS (1)
  1. LEVOTHYROXINE SODIUM. [Suspect]
     Active Substance: LEVOTHYROXINE SODIUM
     Indication: HYPOTHYROIDISM
     Dosage: 50 UG, 1X/DAY
     Route: 048

REACTIONS (6)
  - Myxoedema coma [Unknown]
  - Cardiogenic shock [Unknown]
  - Sepsis [Unknown]
  - Aortic thrombosis [Unknown]
  - Acute kidney injury [Unknown]
  - Peripheral ischaemia [Unknown]
